FAERS Safety Report 9484991 (Version 2)
Quarter: 2013Q3

REPORT INFORMATION
  Report Type: Spontaneous
  Country: US (occurrence: US)
  Receive Date: 20130828
  Receipt Date: 20130828
  Transmission Date: 20140515
  Serious: No
  Sender: FDA-Public Use
  Company Number: US-ABBOTT-13P-163-1106756-00

PATIENT
  Age: 41 Year
  Sex: Male
  Weight: 104.42 kg

DRUGS (9)
  1. ANDROGEL [Suspect]
     Indication: BLOOD TESTOSTERONE DECREASED
     Dosage: 2 PUMPS
     Dates: start: 201304, end: 20130614
  2. METFORMIN HYDROCHLORIDE [Concomitant]
     Indication: DIABETES MELLITUS
  3. GLIMEPIRIDE [Concomitant]
     Indication: DIABETES MELLITUS
  4. ZOLOFT [Concomitant]
     Indication: DEPRESSION
  5. PRAVASTATIN [Concomitant]
     Indication: BLOOD CHOLESTEROL INCREASED
  6. AVINZA [Concomitant]
     Indication: PAIN
  7. PERCOCET [Concomitant]
     Indication: PAIN
  8. ZANAFLEX [Concomitant]
     Indication: PAIN
  9. VOLTAREN [Concomitant]
     Indication: PAIN

REACTIONS (1)
  - Testicular atrophy [Not Recovered/Not Resolved]
